FAERS Safety Report 5712722-0 (Version None)
Quarter: 2008Q2

REPORT INFORMATION
  Report Type: 
  Country: None (occurrence: None)
  Receive Date: 20080421
  Receipt Date: 20080421
  Transmission Date: 20081010
  Serious: Yes (Other)
  Sender: FDA-Public Use
  Company Number: None

PATIENT
  Age: 31 Year
  Sex: Female
  Weight: 43.0917 kg

DRUGS (1)
  1. OXYCODONE 80MG -TEVA- [Suspect]
     Indication: PAIN MANAGEMENT
     Dosage: 80MG 3 TIMES DAILY PO
     Route: 048
     Dates: start: 20080413, end: 20080419

REACTIONS (3)
  - DRUG INEFFECTIVE [None]
  - INCORRECT DOSE ADMINISTERED [None]
  - PHARMACEUTICAL PRODUCT COMPLAINT [None]
